FAERS Safety Report 8576522-9 (Version None)
Quarter: 2012Q3

REPORT INFORMATION
  Report Type: 
  Country: None (occurrence: None)
  Receive Date: 20120807
  Receipt Date: 20120727
  Transmission Date: 20120928
  Serious: No
  Sender: FDA-Public Use
  Company Number: US-BAYER-2012-076794

PATIENT
  Age: 40 Year
  Sex: Female
  Weight: 86 kg

DRUGS (10)
  1. SIMVASTATIN [Concomitant]
     Dosage: 40 MG, DAILY
     Route: 048
     Dates: start: 20080708
  2. PERCOCET [Concomitant]
     Dosage: UNK
     Dates: start: 20080821
  3. ZYRTEC [Concomitant]
  4. ETHINYL ESTRADIOL AND NORETHINDRONE [Concomitant]
     Dosage: UNK
     Dates: start: 20080823
  5. HYDROCHLOROTHIAZDE TAB [Concomitant]
     Dosage: 25 MG, DAILY
     Route: 048
  6. YAZ [Suspect]
     Indication: ACNE
     Dosage: UNK
     Dates: start: 20080711
  7. NAPROSYN [Concomitant]
     Dosage: 50 MG, TWICE DAILY
     Route: 048
     Dates: start: 20080626
  8. POTASSIUM CHLORIDE [Concomitant]
     Dosage: 10 MEQ, DAILY
     Route: 048
     Dates: start: 20080707
  9. STRATTERA [Concomitant]
     Dosage: 40 MG, DAILY
     Dates: start: 20080708
  10. LIPITOR [Concomitant]
     Dosage: 10 MG, DAILY
     Route: 048
     Dates: start: 20080528

REACTIONS (1)
  - THROMBOPHLEBITIS SUPERFICIAL [None]
